FAERS Safety Report 6403199-0 (Version None)
Quarter: 2009Q4

REPORT INFORMATION
  Report Type: 
  Country: None (occurrence: None)
  Receive Date: 20091016
  Receipt Date: 20091016
  Transmission Date: 20100525
  Serious: Yes (Other)
  Sender: FDA-Public Use
  Company Number: US-PFIZER INC-2009213184

PATIENT
  Sex: Male
  Weight: 83.9 kg

DRUGS (2)
  1. LIPITOR [Suspect]
     Indication: BLOOD CHOLESTEROL INCREASED
     Dosage: 40 MG, 1X/DAY, EVERYDAY
     Dates: start: 20090429, end: 20090501
  2. ADDERALL 10 [Concomitant]
     Indication: ATTENTION DEFICIT/HYPERACTIVITY DISORDER
     Dosage: 20 MG, 3X/DAY

REACTIONS (3)
  - BLOOD CREATINE PHOSPHOKINASE ABNORMAL [None]
  - MUSCLE ATROPHY [None]
  - PAIN [None]
